FAERS Safety Report 16339630 (Version 1)
Quarter: 2019Q2

REPORT INFORMATION
  Report Type: Spontaneous
  Country: US (occurrence: US)
  Receive Date: 20190521
  Receipt Date: 20190521
  Transmission Date: 20190711
  Serious: No
  Sender: FDA-Public Use
  Company Number: US-SA-2019SA137371

PATIENT
  Age: 36 Year
  Sex: Female

DRUGS (1)
  1. ADMELOG [Suspect]
     Active Substance: INSULIN LISPRO
     Indication: TYPE 1 DIABETES MELLITUS
     Dosage: 8 TO 14 UNITS A DAY
     Route: 065

REACTIONS (4)
  - Device breakage [Unknown]
  - Product odour abnormal [Unknown]
  - Device leakage [Unknown]
  - Incorrect dose administered by product [Unknown]
